FAERS Safety Report 22315714 (Version 1)
Quarter: 2023Q2

REPORT INFORMATION
  Report Type: Spontaneous
  Country: US (occurrence: None)
  Receive Date: 20230511
  Receipt Date: 20230511
  Transmission Date: 20230722
  Serious: No
  Sender: FDA-Public Use
  Company Number: None

PATIENT
  Age: 62 Year
  Sex: Male
  Weight: 102.06 kg

DRUGS (33)
  1. WELIREG [Suspect]
     Active Substance: BELZUTIFAN
     Indication: Renal cancer
     Dosage: FREQUENCY : DAILY;?
     Route: 048
     Dates: start: 202304, end: 20230509
  2. AFINITOR [Concomitant]
     Active Substance: EVEROLIMUS
  3. AMBIEN [Concomitant]
     Active Substance: ZOLPIDEM TARTRATE
  4. AMLODIPINE [Concomitant]
     Active Substance: AMLODIPINE BESYLATE
  5. ASPIRIN [Concomitant]
     Active Substance: ASPIRIN
  6. BELZUTIFAN [Concomitant]
     Active Substance: BELZUTIFAN
  7. CABOMETYX [Concomitant]
     Active Substance: CABOZANTINIB S-MALATE
  8. CALITHERA CX [Concomitant]
  9. CLOPIDOGREL [Concomitant]
     Active Substance: CLOPIDOGREL BISULFATE
  10. DEXAMETHASONE [Concomitant]
     Active Substance: DEXAMETHASONE
  11. DOXEPIN [Concomitant]
     Active Substance: DOXEPIN
  12. EVEROLIMUS [Concomitant]
     Active Substance: EVEROLIMUS
  13. EZETIMIBE [Concomitant]
     Active Substance: EZETIMIBE
  14. NORCO [Concomitant]
     Active Substance: ACETAMINOPHEN\HYDROCODONE BITARTRATE
  15. HYDROCORTISONE [Concomitant]
     Active Substance: HYDROCORTISONE
  16. LENVIMA [Concomitant]
     Active Substance: LENVATINIB
  17. LEVOFLOXACIN [Concomitant]
     Active Substance: LEVOFLOXACIN
  18. LOSARTAN [Concomitant]
     Active Substance: LOSARTAN
  19. LUNESTA [Concomitant]
     Active Substance: ESZOPICLONE
  20. MELOXICAM [Concomitant]
     Active Substance: MELOXICAM
  21. METOPROLOL [Concomitant]
     Active Substance: METOPROLOL
  22. MOXIFLOXACIN [Concomitant]
     Active Substance: MOXIFLOXACIN
  23. OMEPRAZOLE [Concomitant]
     Active Substance: OMEPRAZOLE
  24. POTASSIUM CHLORIDE [Concomitant]
     Active Substance: POTASSIUM CHLORIDE
  25. PREDNISONE [Concomitant]
     Active Substance: PREDNISONE
  26. PRILOSEC [Concomitant]
     Active Substance: OMEPRAZOLE MAGNESIUM
  27. REPATHA [Concomitant]
     Active Substance: EVOLOCUMAB
  28. ROSUVASTATIN [Concomitant]
     Active Substance: ROSUVASTATIN
  29. TEMAZEPAM [Concomitant]
     Active Substance: TEMAZEPAM
  30. TIVOZANIB [Concomitant]
     Active Substance: TIVOZANIB
  31. TRIAMCINOLONE [Concomitant]
     Active Substance: TRIAMCINOLONE
  32. VITAMIN C-ROSE HIPS [Concomitant]
  33. VITAMIN D3 [Concomitant]
     Active Substance: CHOLECALCIFEROL

REACTIONS (2)
  - Oxygen saturation decreased [None]
  - Therapy interrupted [None]
